FAERS Safety Report 23922748 (Version 1)
Quarter: 2024Q2

REPORT INFORMATION
  Report Type: Spontaneous
  Country: FR (occurrence: FR)
  Receive Date: 20240531
  Receipt Date: 20240531
  Transmission Date: 20240716
  Serious: Yes (Hospitalization, Other)
  Sender: FDA-Public Use
  Company Number: None

PATIENT
  Age: 70 Year
  Sex: Female
  Weight: 53 kg

DRUGS (4)
  1. OPDIVO [Suspect]
     Active Substance: NIVOLUMAB
     Indication: Bronchial carcinoma
     Route: 042
     Dates: start: 20240221, end: 20240221
  2. OPDIVO [Suspect]
     Active Substance: NIVOLUMAB
     Route: 042
     Dates: start: 20240221, end: 20240221
  3. CARBOPLATIN [Concomitant]
     Active Substance: CARBOPLATIN
     Indication: Bronchial carcinoma
     Dosage: 600 MG/ CURE
     Route: 042
     Dates: start: 20240108, end: 20240221
  4. PACLITAXEL [Concomitant]
     Active Substance: PACLITAXEL
     Indication: Bronchial carcinoma
     Dosage: 600 MG/ CURE; 1 FP
     Route: 042
     Dates: start: 20240108, end: 20240221

REACTIONS (2)
  - Eosinophilia [Recovered/Resolved]
  - Eosinophilic pneumonia [Recovering/Resolving]

NARRATIVE: CASE EVENT DATE: 20240326
